FAERS Safety Report 12443511 (Version 1)
Quarter: 2016Q2

REPORT INFORMATION
  Report Type: Report from Study
  Country: US (occurrence: US)
  Receive Date: 20160607
  Receipt Date: 20160607
  Transmission Date: 20160815
  Serious: No
  Sender: FDA-Public Use
  Company Number: US-MDT-ADR-2016-01018

PATIENT
  Age: 62 Year
  Sex: Male

DRUGS (4)
  1. MARCAINE [Suspect]
     Active Substance: BUPIVACAINE HYDROCHLORIDE
     Dosage: 8.9386 MG/DAY
     Route: 037
  2. COMPOUNDED BACLOFEN [Suspect]
     Active Substance: BACLOFEN
     Dosage: 197.27 MCG/DAY
     Route: 037
  3. SUFENTANIL [Suspect]
     Active Substance: SUFENTANIL
     Dosage: 5.1371 MCG/DAY
     Route: 037
  4. BACLOFEN. [Suspect]
     Active Substance: BACLOFEN
     Route: 048
     Dates: end: 20150730

REACTIONS (1)
  - Bladder dysfunction [Recovered/Resolved]

NARRATIVE: CASE EVENT DATE: 201507
